FAERS Safety Report 7122988-0 (Version None)
Quarter: 2010Q4

REPORT INFORMATION
  Report Type: 
  Country: None (occurrence: None)
  Receive Date: 20101124
  Receipt Date: 20101118
  Transmission Date: 20110411
  Serious: Yes (Other)
  Sender: FDA-Public Use
  Company Number: US-PFIZER INC-2010133486

PATIENT
  Sex: Male
  Weight: 68.027 kg

DRUGS (7)
  1. LYRICA [Suspect]
     Indication: PARTIAL SEIZURES
     Dosage: 100 MG, 4X/DAY
     Route: 048
     Dates: start: 20090101
  2. LYRICA [Suspect]
     Indication: EPILEPSY
     Dosage: 150 MG, 3X/DAY
     Route: 048
  3. LAMICTAL [Concomitant]
     Dosage: 200 MG, 2X/DAY
  4. KEPPRA [Concomitant]
     Dosage: 500 MG, DAILY
  5. TOPAMAX [Concomitant]
     Dosage: 50 MG, 2X/DAY
  6. INDERAL [Concomitant]
     Indication: HEADACHE
     Dosage: UNK
  7. SUMATRIPTAN [Concomitant]
     Dosage: 100 MG, UNK

REACTIONS (3)
  - HYPOAESTHESIA [None]
  - PARTIAL SEIZURES [None]
  - PETIT MAL EPILEPSY [None]
